FAERS Safety Report 9509774 (Version 1)
Quarter: 2013Q3

REPORT INFORMATION
  Report Type: Spontaneous
  Country: US (occurrence: US)
  Receive Date: 20130909
  Receipt Date: 20130909
  Transmission Date: 20140515
  Serious: No
  Sender: FDA-Public Use
  Company Number: US-BRISTOL-MYERS SQUIBB COMPANY-18856914

PATIENT
  Age: 23 Year
  Sex: Female
  Weight: 43.99 kg

DRUGS (2)
  1. ABILIFY [Suspect]
  2. GEODON [Suspect]

REACTIONS (6)
  - Liver function test abnormal [Unknown]
  - Thyroiditis [Not Recovered/Not Resolved]
  - Weight decreased [Unknown]
  - Strabismus [Unknown]
  - Paraesthesia [Unknown]
  - Gastric disorder [Unknown]
